FAERS Safety Report 7351284-1 (Version None)
Quarter: 2011Q1

REPORT INFORMATION
  Report Type: 
  Country: None (occurrence: None)
  Receive Date: 20110314
  Receipt Date: 20110309
  Transmission Date: 20110831
  Serious: Yes (Other)
  Sender: FDA-Public Use
  Company Number: JP-PFIZER INC-2011034797

PATIENT
  Age: 82 Year
  Sex: Male

DRUGS (13)
  1. LASOPRAN [Concomitant]
     Route: 048
  2. BISOPOLLON [Concomitant]
     Dosage: 12 MG, DAILY
     Route: 048
  3. MAGMITT [Concomitant]
     Dosage: UNK
     Route: 048
  4. NIVADIL [Concomitant]
  5. TAKEPRON [Concomitant]
  6. URSO 250 [Concomitant]
  7. PANCREAZE [Concomitant]
     Indication: DYSPEPSIA
     Dosage: UNK
     Route: 048
  8. AMOXAN [Concomitant]
     Indication: DEPRESSION
     Route: 048
  9. LENDORMIN [Concomitant]
     Indication: INSOMNIA
     Dosage: 0.25 MG, DAILY
  10. METHISTA [Concomitant]
     Route: 048
  11. TAMSULOSIN HCL [Concomitant]
  12. LYRICA [Suspect]
     Indication: NERVOUS SYSTEM DISORDER
     Dosage: 75 MG, 2X/DAY
     Route: 048
     Dates: start: 20110204, end: 20110216
  13. NILVADIPINE [Concomitant]
     Indication: ESSENTIAL HYPERTENSION
     Dosage: UNK
     Route: 048

REACTIONS (4)
  - HAEMORRHAGE [None]
  - FALL [None]
  - LOSS OF CONTROL OF LEGS [None]
  - GAIT DISTURBANCE [None]
